FAERS Safety Report 8973145 (Version 1)
Quarter: 2012Q4

REPORT INFORMATION
  Report Type: 
  Country: FR (occurrence: FR)
  Receive Date: 20121219
  Receipt Date: 20121219
  Transmission Date: 20130627
  Serious: Yes (Other)
  Sender: FDA-Public Use
  Company Number: FR-AMGEN-FRASP2012079675

PATIENT
  Age: 43 Year
  Sex: Female

DRUGS (2)
  1. ENBREL [Suspect]
     Indication: RHEUMATOID ARTHRITIS
     Dosage: 50 mg, weekly
     Dates: start: 20121127, end: 20121127
  2. METHOTREXATE [Concomitant]
     Dosage: UNK
     Dates: start: 2012

REACTIONS (8)
  - Cough [Not Recovered/Not Resolved]
  - White blood cell count decreased [Unknown]
  - Asphyxia [Not Recovered/Not Resolved]
  - Bronchitis [Not Recovered/Not Resolved]
  - Fatigue [Unknown]
  - Oropharyngeal pain [Unknown]
  - Pyrexia [Unknown]
  - Pain in extremity [Unknown]
